FAERS Safety Report 23495798 (Version 1)
Quarter: 2024Q1

REPORT INFORMATION
  Report Type: Spontaneous
  Country: IN (occurrence: IN)
  Receive Date: 20240207
  Receipt Date: 20240207
  Transmission Date: 20240410
  Serious: Yes (Other)
  Sender: FDA-Public Use
  Company Number: IN-FreseniusKabi-FK202402006

PATIENT
  Age: 61 Year
  Sex: Female
  Weight: 45 kg

DRUGS (1)
  1. PACLITAXEL [Suspect]
     Active Substance: PACLITAXEL
     Indication: Chemotherapy
     Dosage: 242MG?FOA: INJECTION
     Route: 042
     Dates: start: 20231201, end: 20231201

REACTIONS (1)
  - Discomfort [Recovered/Resolved]

NARRATIVE: CASE EVENT DATE: 20231201
